FAERS Safety Report 7504336-7 (Version None)
Quarter: 2011Q2

REPORT INFORMATION
  Report Type: 
  Country: None (occurrence: None)
  Receive Date: 20110525
  Receipt Date: 20110519
  Transmission Date: 20111010
  Serious: Yes (Death)
  Sender: FDA-Public Use
  Company Number: JP-GENZYME-THYM-1001342

PATIENT
  Sex: Male
  Weight: 55 kg

DRUGS (7)
  1. SULFAMETHOPRIM [Concomitant]
     Indication: INFECTION PROPHYLAXIS
     Dosage: UNK
     Dates: start: 20091111, end: 20091117
  2. FILGRASTIM [Concomitant]
     Indication: NEUTROPHIL COUNT DECREASED
     Dosage: UNK
     Dates: start: 20091111, end: 20091127
  3. THYMOGLOBULIN [Suspect]
     Indication: APLASTIC ANAEMIA
     Dosage: 190 MG/DAY, QD
     Route: 042
     Dates: start: 20091111, end: 20091115
  4. MEROPENEM [Concomitant]
     Indication: INFECTION PROPHYLAXIS
     Dosage: UNK
     Dates: start: 20091111, end: 20091204
  5. BLOOD TRANSFUSION, AUXILIARY PRODUCTS [Concomitant]
     Indication: APLASTIC ANAEMIA
     Dosage: UNK
     Dates: start: 20091111, end: 20091207
  6. CYCLOSPORINE [Concomitant]
     Indication: APLASTIC ANAEMIA
     Dosage: UNK
     Dates: start: 20091111, end: 20091202
  7. FAMOTIDIN [Concomitant]
     Indication: PROPHYLAXIS AGAINST GASTROINTESTINAL ULCER
     Dosage: UNK
     Dates: start: 20091111, end: 20091118

REACTIONS (4)
  - PSEUDOMONAL SEPSIS [None]
  - CANDIDIASIS [None]
  - DISEASE PROGRESSION [None]
  - MULTI-ORGAN FAILURE [None]
